FAERS Safety Report 6323837-0 (Version None)
Quarter: 2009Q3

REPORT INFORMATION
  Report Type: 
  Country: None (occurrence: None)
  Receive Date: 20090824
  Receipt Date: 20090602
  Transmission Date: 20100115
  Serious: No
  Sender: FDA-Public Use
  Company Number: US-ABBOTT-09P-163-0577622-00

PATIENT
  Sex: Female
  Weight: 86.26 kg

DRUGS (5)
  1. NIASPAN [Suspect]
     Indication: HIGH DENSITY LIPOPROTEIN DECREASED
     Dosage: DAILY AT HOUR OF SLEEP
     Route: 048
     Dates: start: 20090401
  2. NORVASC [Suspect]
     Indication: HYPERTENSION
     Dosage: UNKNOWN DOSE
     Dates: start: 20090401
  3. LOVAZA [Concomitant]
     Indication: HYPERTENSION
  4. TRILIPIX [Concomitant]
     Indication: BLOOD TRIGLYCERIDES INCREASED
  5. LIPITOR [Concomitant]
     Indication: LOW DENSITY LIPOPROTEIN INCREASED

REACTIONS (3)
  - FLUSHING [None]
  - INCORRECT DOSE ADMINISTERED [None]
  - OEDEMA PERIPHERAL [None]
